FAERS Safety Report 25856673 (Version 1)
Quarter: 2025Q3

REPORT INFORMATION
  Report Type: Spontaneous
  Country: EU (occurrence: EU)
  Receive Date: 20250929
  Receipt Date: 20250929
  Transmission Date: 20251021
  Serious: Yes (Death, Hospitalization)
  Sender: MACLEODS
  Company Number: EU-MACLEODS PHARMA-MAC2025055429

PATIENT

DRUGS (4)
  1. EFAVIRENZ [Suspect]
     Active Substance: EFAVIRENZ
     Indication: HIV infection
     Route: 065
  2. COTRIMOXAZOLE [Concomitant]
     Active Substance: SULFAMETHOXAZOLE\TRIMETHOPRIM
     Indication: HIV infection
     Route: 065
  3. LAMIVUDINE [Concomitant]
     Active Substance: LAMIVUDINE
     Indication: HIV infection
     Route: 065
  4. STAVUDINE [Concomitant]
     Active Substance: STAVUDINE
     Indication: HIV infection
     Route: 065

REACTIONS (3)
  - Acute hepatic failure [Fatal]
  - Disseminated intravascular coagulation [Fatal]
  - Rash [Recovered/Resolved]
